FAERS Safety Report 9437425 (Version 1)
Quarter: 2013Q3

REPORT INFORMATION
  Report Type: Spontaneous
  Country: UA (occurrence: None)
  Receive Date: 20130731
  Receipt Date: 20130731
  Transmission Date: 20140515
  Serious: Yes (Other)
  Sender: FDA-Public Use
  Company Number: GER/UKI/13/0033244

PATIENT
  Age: 32 Year
  Sex: Female

DRUGS (4)
  1. SERTRALINE (SERTRALINE) [Suspect]
     Indication: ANXIETY
     Route: 048
     Dates: start: 20120407, end: 20120416
  2. SERTRALINE (SERTRALINE) [Suspect]
     Indication: ERYTHEMA
     Route: 048
     Dates: start: 20120407, end: 20120416
  3. SERTRALINE (SERTRALINE) [Suspect]
     Indication: SOCIAL PHOBIA
     Route: 048
     Dates: start: 20120407, end: 20120416
  4. DIANETTE (DIANE) [Concomitant]

REACTIONS (6)
  - Fear [None]
  - Paranoia [None]
  - Phobia [None]
  - Psychotic disorder [None]
  - Insomnia [None]
  - Hallucination, visual [None]
